FAERS Safety Report 4867658-4 (Version None)
Quarter: 2005Q4

REPORT INFORMATION
  Report Type: 
  Country: None (occurrence: None)
  Receive Date: 20051222
  Receipt Date: 20020413
  Transmission Date: 20060501
  Serious: Yes (Death, Hospitalization)
  Sender: FDA-Public Use
  Company Number: HQ7732722JUN2000

PATIENT
  Age: 69 Year
  Sex: Female
  Weight: 65.8 kg

DRUGS (5)
  1. MYLOTARG [Suspect]
     Indication: ACUTE MYELOID LEUKAEMIA
     Dosage: 9 MG/M^2 1X PER 1 DOS, INTRAVENOUS
     Route: 042
     Dates: start: 19991025, end: 19991025
  2. LEVOTHYROXINE SODIUM [Concomitant]
  3. DIGOXIN [Concomitant]
  4. OMEPRAZOLE [Concomitant]
  5. ALLOPURINOL [Concomitant]

REACTIONS (7)
  - ACUTE MYELOID LEUKAEMIA [None]
  - ATRIAL FIBRILLATION [None]
  - FEBRILE NEUTROPENIA [None]
  - FURUNCLE [None]
  - HYPOTENSION [None]
  - MALIGNANT NEOPLASM PROGRESSION [None]
  - SEPSIS [None]
